FAERS Safety Report 9318840 (Version 1)
Quarter: 2013Q2

REPORT INFORMATION
  Report Type: Spontaneous
  Country: US (occurrence: US)
  Receive Date: 20130530
  Receipt Date: 20130530
  Transmission Date: 20140414
  Serious: No
  Sender: FDA-Public Use
  Company Number: US-NOVEN-13US006284

PATIENT
  Age: 16 Year
  Sex: Male
  Weight: 61.22 kg

DRUGS (3)
  1. DAYTRANA [Suspect]
     Indication: PRODUCT USED FOR UNKNOWN INDICATION
     Dosage: 30 MG X2, QD
     Route: 062
     Dates: start: 2008
  2. DAYTRANA [Suspect]
     Dosage: 30MG AND 10MG
  3. DAYTRANA [Suspect]
     Dosage: 30MG AND 20MG

REACTIONS (2)
  - Wrong technique in drug usage process [Not Recovered/Not Resolved]
  - No adverse event [None]
